FAERS Safety Report 8933638 (Version 1)
Quarter: 2012Q4

REPORT INFORMATION
  Report Type: 
  Country: US (occurrence: US)
  Receive Date: 20121129
  Receipt Date: 20121129
  Transmission Date: 20130627
  Serious: No
  Sender: FDA-Public Use
  Company Number: US-TEVA-373021USA

PATIENT
  Age: 64 Year
  Sex: Male

DRUGS (1)
  1. TREANDA [Suspect]

REACTIONS (2)
  - Atrial flutter [Unknown]
  - Tachycardia [Unknown]
